FAERS Safety Report 16967301 (Version 1)
Quarter: 2019Q4

REPORT INFORMATION
  Report Type: Spontaneous
  Country: US (occurrence: US)
  Receive Date: 20191028
  Receipt Date: 20191028
  Transmission Date: 20200122
  Serious: Yes (Other)
  Sender: FDA-Public Use
  Company Number: US-MYLANLABS-2019M1101159

PATIENT
  Age: 20 Year
  Sex: Male

DRUGS (18)
  1. TOBI PODHALER [Suspect]
     Active Substance: TOBRAMYCIN
     Indication: PRODUCT USED FOR UNKNOWN INDICATION
     Route: 055
  2. LACTOSE [Concomitant]
     Active Substance: LACTOSE
  3. SODIUM CHLORIDE. [Concomitant]
     Active Substance: SODIUM CHLORIDE
  4. CAYSTON [Suspect]
     Active Substance: AZTREONAM
     Indication: CYSTIC FIBROSIS
  5. CREON [Concomitant]
     Active Substance: PANCRELIPASE AMYLASE\PANCRELIPASE LIPASE\PANCRELIPASE PROTEASE
  6. FLUTICASONE. [Concomitant]
     Active Substance: FLUTICASONE
  7. GLUCAGON. [Concomitant]
     Active Substance: GLUCAGON
  8. VITAMIN E NOS [Concomitant]
     Active Substance: .ALPHA.-TOCOPHEROL
  9. CAYSTON [Suspect]
     Active Substance: AZTREONAM
     Indication: PSEUDOMONAS INFECTION
  10. ALBUTEROL                          /00139501/ [Concomitant]
     Active Substance: ALBUTEROL
  11. BECLOMETASONE [Concomitant]
     Active Substance: BECLOMETHASONE DIPROPIONATE
  12. ASCORBIC ACID. [Concomitant]
     Active Substance: ASCORBIC ACID
  13. VITAMIN D                          /00107901/ [Concomitant]
     Active Substance: ERGOCALCIFEROL
  14. GLUCOSAMINE MSM [Concomitant]
  15. AZITHROMYCIN ANHYDROUS. [Concomitant]
     Active Substance: AZITHROMYCIN ANHYDROUS
  16. RANITIDINE HYDROCHLORIDE. [Concomitant]
     Active Substance: RANITIDINE HYDROCHLORIDE
  17. PULMOZYME [Concomitant]
     Active Substance: DORNASE ALFA
  18. ORKAMBI [Concomitant]
     Active Substance: IVACAFTOR\LUMACAFTOR

REACTIONS (2)
  - Throat irritation [Unknown]
  - Treatment failure [Unknown]
